FAERS Safety Report 17224720 (Version 1)
Quarter: 2020Q1

REPORT INFORMATION
  Report Type: Spontaneous
  Country: DE (occurrence: DE)
  Receive Date: 20200102
  Receipt Date: 20200102
  Transmission Date: 20200409
  Serious: Yes (Hospitalization)
  Sender: FDA-Public Use
  Company Number: DE-TEVA-2019-DE-1160177

PATIENT
  Age: 89 Year
  Sex: Female

DRUGS (9)
  1. METOPROLOL. [Suspect]
     Active Substance: METOPROLOL
     Dosage: 95 MG, 0.5-0-0.5-1, PROLONGED-RELEASE TABLETS , 95 MG
     Route: 048
  2. INSULIN (HUMAN)/INSULIN-ISOPHAN (HUMAN) [Concomitant]
     Dosage: 25 | 100 IU, 10-0-6-0, AMPOULES
     Route: 058
  3. PANTOPRAZOL [Concomitant]
     Active Substance: PANTOPRAZOLE SODIUM
     Dosage: 40 MG, 1-0-0-0, TABLETS , 40 MG
     Route: 048
  4. VALSARTAN. [Concomitant]
     Active Substance: VALSARTAN
     Dosage: 160 MG, 1-0-0-1, TABLETS
     Route: 048
  5. PANKREATIN (SCHWEIN) [Concomitant]
     Dosage: 40000 MG, 1-1-1-0, CAPSULES
     Route: 048
  6. NITRENDIPIN [Concomitant]
     Active Substance: NITRENDIPINE
     Dosage: 20 MG, 1-0-0-1, TABLETS , 20 MG
     Route: 048
  7. ACETYLSALICYLSAURE [Concomitant]
     Active Substance: ASPIRIN
     Dosage: 100 MG, 1-0-0-0, TABLETS
     Route: 048
  8. FUROSEMID [Concomitant]
     Active Substance: FUROSEMIDE
     Dosage: 80 MG, 2-1-0-0, TABLETS , 80 MG
     Route: 048
  9. URAPIDIL [Concomitant]
     Active Substance: URAPIDIL
     Dosage: 60 MG, 1-0-1-0, PROLONGED-RELEASE CAPSULES , 60 MG
     Route: 048

REACTIONS (2)
  - Rhonchi [Unknown]
  - Dyspnoea [Unknown]
